FAERS Safety Report 8337715-9 (Version None)
Quarter: 2012Q2

REPORT INFORMATION
  Report Type: 
  Country: None (occurrence: None)
  Receive Date: 20120504
  Receipt Date: 20120502
  Transmission Date: 20120825
  Serious: Yes (Hospitalization)
  Sender: FDA-Public Use
  Company Number: US-B.I. PHARMACEUTICALS,INC./RIDGEFIELD-2012-BP-10000BP

PATIENT
  Age: 83 Year
  Sex: Female

DRUGS (3)
  1. SPIRONOLACTONE [Concomitant]
     Dates: end: 20120420
  2. PRADAXA [Suspect]
     Indication: ATRIAL FIBRILLATION
     Dosage: 300 MG
     Route: 048
     Dates: end: 20120420
  3. AMIODARONE HCL [Concomitant]
     Dates: end: 20120420

REACTIONS (2)
  - BRADYCARDIA [None]
  - HAEMORRHAGE [None]
